FAERS Safety Report 21962594 (Version 1)
Quarter: 2023Q1

REPORT INFORMATION
  Report Type: Report from Study
  Country: US (occurrence: US)
  Receive Date: 20230207
  Receipt Date: 20230207
  Transmission Date: 20230418
  Serious: Yes (Death, Hospitalization, Other)
  Sender: FDA-Public Use
  Company Number: US-ABBVIE-4297709

PATIENT

DRUGS (1)
  1. SKYRIZI [Suspect]
     Active Substance: RISANKIZUMAB-RZAA
     Indication: Crohn^s disease
     Dosage: LOADING DOSE?FORM STRENGTH: 150 MILLIGRAM
     Route: 058
     Dates: start: 20221216, end: 20221216

REACTIONS (2)
  - Death [Fatal]
  - Crohn^s disease [Unknown]
